FAERS Safety Report 4717583-4 (Version None)
Quarter: 2005Q3

REPORT INFORMATION
  Report Type: 
  Country: None (occurrence: None)
  Receive Date: 20050712
  Receipt Date: 20050607
  Transmission Date: 20060218
  Serious: No
  Sender: FDA-Public Use
  Company Number: 2005S1000115

PATIENT
  Age: 65 Year
  Sex: Female
  Weight: 90 kg

DRUGS (5)
  1. CUBICIN [Suspect]
     Indication: ARTHRITIS
     Dosage: 5.5 MG/KG;Q24H;IV
     Route: 042
     Dates: start: 20050101, end: 20050601
  2. CUBICIN [Suspect]
     Indication: POSTOPERATIVE INFECTION
     Dosage: 5.5 MG/KG;Q24H;IV
     Route: 042
     Dates: start: 20050101, end: 20050601
  3. CUBICIN [Suspect]
     Indication: STAPHYLOCOCCAL SEPSIS
     Dosage: 5.5 MG/KG;Q24H;IV
     Route: 042
     Dates: start: 20050101, end: 20050601
  4. VANCOMYCIN [Concomitant]
  5. RIFAMPIN [Concomitant]

REACTIONS (3)
  - BLOOD CREATINE PHOSPHOKINASE INCREASED [None]
  - PRURITUS [None]
  - RASH MACULO-PAPULAR [None]
